FAERS Safety Report 16780812 (Version 1)
Quarter: 2019Q3

REPORT INFORMATION
  Report Type: Spontaneous
  Country: US (occurrence: US)
  Receive Date: 20190906
  Receipt Date: 20190906
  Transmission Date: 20191005
  Serious: Yes (Hospitalization, Other)
  Sender: FDA-Public Use
  Company Number: US-ASTRAZENECA-2019SF23873

PATIENT
  Sex: Male
  Weight: 102.3 kg

DRUGS (9)
  1. SEROQUEL [Suspect]
     Active Substance: QUETIAPINE FUMARATE
     Route: 048
  2. HYDROXYZINE [Suspect]
     Active Substance: HYDROXYZINE HYDROCHLORIDE
     Route: 065
  3. LASIX [Concomitant]
     Active Substance: FUROSEMIDE
  4. NICOTINE POLACRILEX [Concomitant]
     Active Substance: NICOTINE
  5. NALOXONE [Concomitant]
     Active Substance: NALOXONE
  6. CLONIDINE. [Concomitant]
     Active Substance: CLONIDINE
  7. BUPRENORPHINE. [Concomitant]
     Active Substance: BUPRENORPHINE
  8. WELLBUTRIN [Suspect]
     Active Substance: BUPROPION HYDROCHLORIDE
     Route: 065
  9. SODIUM BICARBONATE. [Concomitant]
     Active Substance: SODIUM BICARBONATE

REACTIONS (8)
  - Acute kidney injury [Unknown]
  - Inflammation [Unknown]
  - Autoimmune disorder [Unknown]
  - Rheumatoid factor increased [Unknown]
  - Musculoskeletal stiffness [Unknown]
  - Rhabdomyolysis [Unknown]
  - Lymphoma [Unknown]
  - Rheumatic disorder [Unknown]

NARRATIVE: CASE EVENT DATE: 20181227
